FAERS Safety Report 12895023 (Version 1)
Quarter: 2016Q4

REPORT INFORMATION
  Report Type: Spontaneous
  Country: US (occurrence: US)
  Receive Date: 20161029
  Receipt Date: 20161029
  Transmission Date: 20170207
  Serious: No
  Sender: FDA-Public Use
  Company Number: US-AMGEN-USASP2016144173

PATIENT
  Sex: Female

DRUGS (1)
  1. ENBREL [Suspect]
     Active Substance: ETANERCEPT
     Indication: PSORIASIS
     Dosage: 50 MG, 2 TIMES/WK
     Route: 065
     Dates: start: 201610, end: 201610

REACTIONS (4)
  - Injection site induration [Recovering/Resolving]
  - Injection site reaction [Recovering/Resolving]
  - Injection site vesicles [Recovering/Resolving]
  - Injection site recall reaction [Recovering/Resolving]

NARRATIVE: CASE EVENT DATE: 201610
